FAERS Safety Report 18920910 (Version 1)
Quarter: 2021Q1

REPORT INFORMATION
  Report Type: Spontaneous
  Country: US (occurrence: US)
  Receive Date: 20210222
  Receipt Date: 20210222
  Transmission Date: 20210420
  Serious: Yes (Other)
  Sender: FDA-Public Use
  Company Number: US-ALLERGAN-2104422US

PATIENT
  Age: 65 Year
  Sex: Male

DRUGS (4)
  1. DUREZOL [Concomitant]
     Active Substance: DIFLUPREDNATE
  2. OZURDEX [Suspect]
     Active Substance: DEXAMETHASONE
     Indication: DIABETIC RETINAL OEDEMA
     Dosage: 0.7 MG, SINGLE
     Route: 031
     Dates: start: 20210119, end: 20210119
  3. COSOPT [Concomitant]
     Active Substance: DORZOLAMIDE HYDROCHLORIDE\TIMOLOL MALEATE
     Indication: HYPERTENSION
  4. UNK DIABETES MEDICATION [Concomitant]
     Indication: DIABETES MELLITUS

REACTIONS (1)
  - Endophthalmitis [Unknown]

NARRATIVE: CASE EVENT DATE: 20210122
